FAERS Safety Report 19568200 (Version 1)
Quarter: 2021Q3

REPORT INFORMATION
  Report Type: Spontaneous
  Country: GB (occurrence: GB)
  Receive Date: 20210716
  Receipt Date: 20210716
  Transmission Date: 20211014
  Serious: Yes (Disabling, Other)
  Sender: FDA-Public Use
  Company Number: GB-SUN PHARMACEUTICAL INDUSTRIES LTD-2021RR-304649

PATIENT
  Age: 79 Year
  Sex: Female

DRUGS (2)
  1. ALENDRONIC ACID [Suspect]
     Active Substance: ALENDRONIC ACID
     Indication: BODY HEIGHT DECREASED
     Dosage: 70 MILLIGRAM, WEEKLY
     Route: 065
  2. DENOSUMAB [Suspect]
     Active Substance: DENOSUMAB
     Indication: BODY HEIGHT DECREASED
     Dosage: 60 MILLIGRAM, 6 MONTHLY
     Route: 065

REACTIONS (2)
  - Disease progression [Unknown]
  - Osteonecrosis of external auditory canal [Recovered/Resolved]
